FAERS Safety Report 8422362-0 (Version None)
Quarter: 2012Q2

REPORT INFORMATION
  Report Type: 
  Country: None (occurrence: None)
  Receive Date: 20120604
  Receipt Date: 20120529
  Transmission Date: 20120825
  Serious: Yes (Life-Threatening, Hospitalization)
  Sender: FDA-Public Use
  Company Number: 2012SP028121

PATIENT
  Age: 42 Year
  Sex: Male

DRUGS (2)
  1. NEXIUM [Concomitant]
  2. SAPHRIS [Suspect]
     Indication: PRODUCT USED FOR UNKNOWN INDICATION
     Dosage: 10 MG;QD;SL
     Route: 060
     Dates: start: 20120503, end: 20120506

REACTIONS (5)
  - UNEVALUABLE EVENT [None]
  - DYSSTASIA [None]
  - SOMNOLENCE [None]
  - VISUAL IMPAIRMENT [None]
  - FEAR OF DEATH [None]
